FAERS Safety Report 4864152-1 (Version None)
Quarter: 2005Q4

REPORT INFORMATION
  Report Type: 
  Country: None (occurrence: None)
  Receive Date: 20051222
  Receipt Date: 20051220
  Transmission Date: 20060501
  Serious: Yes (Hospitalization)
  Sender: FDA-Public Use
  Company Number: FR-GLAXOSMITHKLINE-B0404334A

PATIENT
  Age: 57 Year
  Sex: Male
  Weight: 78 kg

DRUGS (4)
  1. ZYLORIC [Suspect]
     Dosage: 300MG PER DAY
     Route: 048
     Dates: end: 20051122
  2. ZELITREX [Suspect]
     Dosage: 1000MG PER DAY
     Route: 048
     Dates: end: 20051122
  3. VFEND [Suspect]
     Dosage: 2UNIT PER DAY
     Route: 048
     Dates: start: 20051109, end: 20051122
  4. TRIFLUCAN [Suspect]
     Dosage: 100MG PER DAY
     Route: 048
     Dates: end: 20051120

REACTIONS (1)
  - AGRANULOCYTOSIS [None]
